FAERS Safety Report 13437001 (Version 1)
Quarter: 2017Q2

REPORT INFORMATION
  Report Type: Spontaneous
  Country: US (occurrence: US)
  Receive Date: 20170412
  Receipt Date: 20170412
  Transmission Date: 20170830
  Serious: No
  Sender: FDA-Public Use
  Company Number: US-SA-2016SA099751

PATIENT
  Age: 78 Year
  Sex: Female

DRUGS (1)
  1. ALLEGRA [Suspect]
     Active Substance: FEXOFENADINE HYDROCHLORIDE
     Indication: HYPERSENSITIVITY
     Dosage: SHE TOOK 2 DOSES
     Route: 065
     Dates: start: 20160519, end: 20160520

REACTIONS (3)
  - Asthenia [Unknown]
  - Chills [Unknown]
  - Fatigue [Unknown]
